FAERS Safety Report 7260755-8 (Version None)
Quarter: 2011Q1

REPORT INFORMATION
  Report Type: 
  Country: None (occurrence: None)
  Receive Date: 20110130
  Receipt Date: 20101220
  Transmission Date: 20110831
  Serious: No
  Sender: FDA-Public Use
  Company Number: US-ABBOTT-10P-163-0693552-00

PATIENT
  Age: 46 Year
  Sex: Male

DRUGS (3)
  1. FLUTICASONE PROPIONATE [Concomitant]
     Indication: PRODUCT USED FOR UNKNOWN INDICATION
     Route: 045
  2. HUMIRA [Suspect]
     Indication: PSORIASIS
     Dates: start: 20101110
  3. CLONAZEPAM [Concomitant]
     Indication: PRODUCT USED FOR UNKNOWN INDICATION

REACTIONS (3)
  - VISION BLURRED [None]
  - HEADACHE [None]
  - VISUAL IMPAIRMENT [None]
